FAERS Safety Report 5755681-7 (Version None)
Quarter: 2008Q2

REPORT INFORMATION
  Report Type: 
  Country: None (occurrence: None)
  Receive Date: 20080602
  Receipt Date: 20080528
  Transmission Date: 20081010
  Serious: Yes (Life-Threatening)
  Sender: FDA-Public Use
  Company Number: JP-ASTRAZENECA-2008AP03736

PATIENT
  Age: 53 Year
  Sex: Female

DRUGS (2)
  1. XYLOCAINE VISCOUS [Suspect]
     Indication: LOCAL ANAESTHESIA
     Dosage: DOSE UNKNOWN
     Route: 049
     Dates: start: 20051014, end: 20051014
  2. BUSCOPAN [Suspect]
     Dosage: DOSE UNKNOWN
     Route: 030
     Dates: start: 20051014, end: 20051014

REACTIONS (2)
  - BRADYCARDIA [None]
  - DEPRESSED LEVEL OF CONSCIOUSNESS [None]
